FAERS Safety Report 8482621-2 (Version None)
Quarter: 2012Q3

REPORT INFORMATION
  Report Type: 
  Country: None (occurrence: None)
  Receive Date: 20120702
  Receipt Date: 20120627
  Transmission Date: 20120928
  Serious: Yes (Hospitalization, Other)
  Sender: FDA-Public Use
  Company Number: US-MERCK-1105USA00586

PATIENT
  Age: 54 Year
  Sex: Female

DRUGS (8)
  1. FOSAMAX [Suspect]
     Indication: OSTEOPOROSIS
     Route: 048
     Dates: start: 20020130, end: 20080130
  2. SINGULAIR [Concomitant]
     Route: 048
  3. FOSAMAX [Suspect]
     Indication: OSTEOPENIA
     Route: 048
     Dates: start: 20020130, end: 20080130
  4. RECLAST [Suspect]
     Indication: OSTEOPENIA
     Dosage: IV GIVEN YEARLY
     Route: 041
     Dates: start: 20080101
  5. NASONEX [Concomitant]
     Indication: HYPERSENSITIVITY
     Route: 055
  6. PREVACID [Concomitant]
     Route: 065
     Dates: start: 20020101, end: 20031101
  7. OMEPRAZOLE [Concomitant]
     Route: 065
     Dates: start: 20050301, end: 20051001
  8. CALCIUM (UNSPECIFIED) [Concomitant]
     Route: 065
     Dates: start: 20020101

REACTIONS (27)
  - COMPRESSION FRACTURE [None]
  - INTERVERTEBRAL DISC DEGENERATION [None]
  - ANAEMIA [None]
  - HYPERLIPIDAEMIA [None]
  - EXCORIATION [None]
  - COLONIC POLYP [None]
  - FALL [None]
  - ALCOHOL POISONING [None]
  - PANIC ATTACK [None]
  - HEADACHE [None]
  - CHOLECYSTITIS CHRONIC [None]
  - OSTEOTOMY [None]
  - FEMUR FRACTURE [None]
  - SCIATICA [None]
  - ROTATOR CUFF SYNDROME [None]
  - RIB FRACTURE [None]
  - OTITIS MEDIA [None]
  - BACK PAIN [None]
  - BREAST CANCER [None]
  - PATHOLOGICAL FRACTURE [None]
  - MIGRAINE [None]
  - BLOOD PRESSURE INADEQUATELY CONTROLLED [None]
  - BUNION [None]
  - URINARY TRACT INFECTION [None]
  - ANXIETY [None]
  - DIVERTICULUM [None]
  - DEPRESSION [None]
